FAERS Safety Report 18435950 (Version 1)
Quarter: 2020Q4

REPORT INFORMATION
  Report Type: Spontaneous
  Country: US (occurrence: US)
  Receive Date: 20201028
  Receipt Date: 20201028
  Transmission Date: 20210114
  Serious: Yes (Hospitalization)
  Sender: FDA-Public Use
  Company Number: None

PATIENT
  Age: 72 Year
  Sex: Female
  Weight: 93 kg

DRUGS (6)
  1. VINCRISTINE SULFATE. [Suspect]
     Active Substance: VINCRISTINE SULFATE
     Dates: end: 20200927
  2. CYCLOPHOSPHAMIDE. [Suspect]
     Active Substance: CYCLOPHOSPHAMIDE
     Dates: end: 20200928
  3. ETOPOSIDE (VP-16) [Suspect]
     Active Substance: ETOPOSIDE
     Dates: end: 20200927
  4. RITUXIMAB (MOAB C2B8 ANTI CD20, CHIMERIC) [Suspect]
     Active Substance: RITUXIMAB
     Dates: end: 20200924
  5. DOXORUBICIN HYDROCHLORIDE. [Suspect]
     Active Substance: DOXORUBICIN HYDROCHLORIDE
     Dates: end: 20200927
  6. PREDNISONE. [Suspect]
     Active Substance: PREDNISONE
     Dates: end: 20200928

REACTIONS (13)
  - Vomiting [None]
  - Hypoxia [None]
  - Systolic dysfunction [None]
  - Pulmonary embolism [None]
  - Cardiac disorder [None]
  - Oedema peripheral [None]
  - Dizziness [None]
  - Deep vein thrombosis [None]
  - Right ventricular dilatation [None]
  - Dyspnoea exertional [None]
  - Fatigue [None]
  - Tachycardia [None]
  - Diastolic dysfunction [None]

NARRATIVE: CASE EVENT DATE: 20201015
